FAERS Safety Report 5827538-4 (Version None)
Quarter: 2008Q3

REPORT INFORMATION
  Report Type: 
  Country: None (occurrence: None)
  Receive Date: 20080730
  Receipt Date: 20080724
  Transmission Date: 20090109
  Serious: Yes (Hospitalization, Other)
  Sender: FDA-Public Use
  Company Number: GB-BAUSCH-2008BL003250

PATIENT
  Sex: Male

DRUGS (7)
  1. DEXAMETHASONE [Suspect]
     Indication: MULTIPLE MYELOMA
  2. VELCADE [Suspect]
     Indication: MULTIPLE MYELOMA
     Dates: start: 20080422, end: 20080101
  3. ASPIRIN [Concomitant]
     Indication: ATRIAL FIBRILLATION
  4. DILTIAZEM HCL [Concomitant]
     Indication: ATRIAL FIBRILLATION
  5. GABAPENTIN [Concomitant]
  6. ROSUVASTATIN CALCIUM [Concomitant]
     Indication: BLOOD CHOLESTEROL INCREASED
  7. THYROXINE ^APS^ [Concomitant]
     Indication: HYPOTHYROIDISM

REACTIONS (1)
  - PNEUMONIA [None]
